FAERS Safety Report 19691865 (Version 3)
Quarter: 2021Q4

REPORT INFORMATION
  Report Type: Report from Study
  Country: US (occurrence: US)
  Receive Date: 20210812
  Receipt Date: 20211209
  Transmission Date: 20220303
  Serious: Yes (Hospitalization)
  Sender: FDA-Public Use
  Company Number: US-JNJFOC-20210807436

PATIENT
  Age: 53 Year
  Sex: Female
  Weight: 72.640 kg

DRUGS (2)
  1. SPRAVATO [Suspect]
     Active Substance: ESKETAMINE
     Indication: Depression
     Dates: start: 20210602, end: 20210602
  2. SPRAVATO [Suspect]
     Active Substance: ESKETAMINE
     Indication: Depression suicidal

REACTIONS (4)
  - Schizophrenia [Recovered/Resolved]
  - Bipolar disorder [Recovered/Resolved]
  - Paranoia [Recovered/Resolved]
  - Depression [Unknown]

NARRATIVE: CASE EVENT DATE: 20210101
